FAERS Safety Report 6103545-1 (Version None)
Quarter: 2009Q1

REPORT INFORMATION
  Report Type: 
  Country: None (occurrence: None)
  Receive Date: 20090305
  Receipt Date: 20090202
  Transmission Date: 20090719
  Serious: No
  Sender: FDA-Public Use
  Company Number: US-BAYER-200910371BCC

PATIENT
  Age: 48 Year
  Sex: Female
  Weight: 91 kg

DRUGS (4)
  1. ALEVE (CAPLET) [Suspect]
     Indication: BACK PAIN
     Dosage: UNIT DOSE: 220 MG
     Dates: start: 20090202
  2. PREDNISONE [Concomitant]
  3. HYDROXYCHLOROQUINE SULFATE [Concomitant]
  4. OMEPRAZOLE [Concomitant]

REACTIONS (1)
  - BACK PAIN [None]
